FAERS Safety Report 23032489 (Version 1)
Quarter: 2023Q4

REPORT INFORMATION
  Report Type: Report from Study
  Country: US (occurrence: US)
  Receive Date: 20231005
  Receipt Date: 20231005
  Transmission Date: 20240109
  Serious: Yes (Other)
  Sender: FDA-Public Use
  Company Number: US-SANDOZ-SDZ2023US036294

PATIENT
  Age: 65 Year
  Sex: Female
  Weight: 58.05 kg

DRUGS (3)
  1. TREPROSTINIL [Suspect]
     Active Substance: TREPROSTINIL
     Indication: Pulmonary arterial hypertension
     Dosage: 23.5 5 NG/KG/MIN, CONT
     Route: 058
     Dates: start: 20220622
  2. ADEMPAS [Concomitant]
     Active Substance: RIOCIGUAT
     Indication: Product used for unknown indication
     Dosage: UNK
     Route: 065
  3. AMBRISENTAN [Concomitant]
     Active Substance: AMBRISENTAN
     Indication: Product used for unknown indication
     Dosage: UNK
     Route: 065

REACTIONS (10)
  - Pneumonia [Unknown]
  - Retching [Unknown]
  - Urine output decreased [Unknown]
  - Application site reaction [Unknown]
  - Peripheral swelling [Unknown]
  - Raynaud^s phenomenon [Unknown]
  - COVID-19 [Unknown]
  - Middle ear effusion [Unknown]
  - Diarrhoea [Unknown]
  - Drug ineffective [Unknown]

NARRATIVE: CASE EVENT DATE: 20230801
